FAERS Safety Report 22129302 (Version 1)
Quarter: 2023Q1

REPORT INFORMATION
  Report Type: Spontaneous
  Country: US (occurrence: None)
  Receive Date: 20230323
  Receipt Date: 20230323
  Transmission Date: 20230417
  Serious: Yes (Hospitalization, Other)
  Sender: FDA-Public Use
  Company Number: US-ROCHE-3312175

PATIENT
  Age: 23 Year
  Sex: Female

DRUGS (8)
  1. CELLCEPT [Suspect]
     Active Substance: MYCOPHENOLATE MOFETIL
     Indication: Product used for unknown indication
     Route: 065
  2. LUPKYNIS [Suspect]
     Active Substance: VOCLOSPORIN
     Indication: Lupus nephritis
     Route: 048
     Dates: start: 20220225
  3. MYFORTIC [Concomitant]
     Active Substance: MYCOPHENOLATE SODIUM
  4. SPIRONOLACTONE [Concomitant]
     Active Substance: SPIRONOLACTONE
  5. BUMEX [Concomitant]
     Active Substance: BUMETANIDE
     Indication: Polyuria
  6. METOLAZONE [Concomitant]
     Active Substance: METOLAZONE
  7. LOSARTAN [Concomitant]
     Active Substance: LOSARTAN
  8. PREDNISONE [Concomitant]
     Active Substance: PREDNISONE

REACTIONS (16)
  - Posterior reversible encephalopathy syndrome [Unknown]
  - Seizure [Unknown]
  - Pneumonia [Unknown]
  - Hypervolaemia [Recovering/Resolving]
  - Nausea [Unknown]
  - Vomiting [Unknown]
  - Acute pulmonary oedema [Unknown]
  - Blood creatinine increased [Unknown]
  - Renal impairment [Unknown]
  - Diarrhoea [Unknown]
  - Haematuria [Unknown]
  - Hypokalaemia [Unknown]
  - Proteinuria [Unknown]
  - Blood potassium decreased [Unknown]
  - Pancytopenia [Recovered/Resolved]
  - Polyuria [Unknown]

NARRATIVE: CASE EVENT DATE: 20221001
